FAERS Safety Report 19293421 (Version 1)
Quarter: 2021Q2

REPORT INFORMATION
  Report Type: Spontaneous
  Country: US (occurrence: US)
  Receive Date: 20210523
  Receipt Date: 20210523
  Transmission Date: 20210717
  Serious: Yes (Life-Threatening, Hospitalization, Disabling, Other)
  Sender: FDA-Public Use
  Company Number: None

PATIENT
  Age: 68 Year
  Sex: Male
  Weight: 72.9 kg

DRUGS (14)
  1. MAXALT [Concomitant]
     Active Substance: RIZATRIPTAN BENZOATE
  2. MULTIVITAMIN [Concomitant]
     Active Substance: VITAMINS
  3. BUDESONIDE. [Concomitant]
     Active Substance: BUDESONIDE
  4. VITAMIN B12 [Concomitant]
     Active Substance: CYANOCOBALAMIN
  5. JAKAFI [Concomitant]
     Active Substance: RUXOLITINIB
  6. VITAMIN D [Concomitant]
     Active Substance: VITAMIN D NOS
  7. MG++ [Concomitant]
  8. PANTAPROZOL [Concomitant]
  9. AIMOVIG [Suspect]
     Active Substance: ERENUMAB-AOOE
     Indication: HEADACHE
     Dosage: ?          OTHER ROUTE:AUTOINJECTOR?
     Dates: start: 20181103, end: 20181103
  10. TACROLIMUS. [Concomitant]
     Active Substance: TACROLIMUS
  11. ACYCLOVIR. [Concomitant]
     Active Substance: ACYCLOVIR
  12. TAGAMET [Concomitant]
     Active Substance: CIMETIDINE
  13. GAVISCON [Concomitant]
     Active Substance: ALUMINUM HYDROXIDE\MAGNESIUM CARBONATE
  14. ZINC. [Concomitant]
     Active Substance: ZINC

REACTIONS (7)
  - Paraesthesia [None]
  - Renal cell carcinoma [None]
  - Constipation [None]
  - Leukopenia [None]
  - Herpes zoster [None]
  - Rash [None]
  - Acute myeloid leukaemia [None]

NARRATIVE: CASE EVENT DATE: 20181103
